FAERS Safety Report 4984197-0 (Version None)
Quarter: 2006Q2

REPORT INFORMATION
  Report Type: 
  Country: None (occurrence: None)
  Receive Date: 20060420
  Receipt Date: 20060410
  Transmission Date: 20061013
  Serious: Yes (Life-Threatening, Hospitalization)
  Sender: FDA-Public Use
  Company Number: 2006049255

PATIENT
  Age: 53 Year
  Sex: Male

DRUGS (6)
  1. LINEZOLID [Suspect]
     Indication: ILL-DEFINED DISORDER
     Dosage: 1200 MG (2 IN 1 D), INTRAVENOUS
     Route: 042
     Dates: start: 20060104, end: 20060109
  2. VORICONAZOLE (VORICONAZOLE) [Suspect]
     Indication: ILL-DEFINED DISORDER
     Dosage: 400 MG (200 MG, 2 IN 1 D), ORAL
     Route: 048
     Dates: start: 20051227, end: 20060109
  3. AMPHOTERICIN B [Suspect]
     Indication: ILL-DEFINED DISORDER
     Dosage: INTRAVENOUS
     Route: 042
     Dates: start: 20051224
  4. TACROLIMUS (TACROLIMUS) [Suspect]
     Indication: ILL-DEFINED DISORDER
     Dosage: 2 MG (1 MG, 2 IN 1 D), ORAL
     Route: 048
     Dates: start: 20051229
  5. GANCICLOVIR [Suspect]
     Indication: ILL-DEFINED DISORDER
     Dosage: 200 MG (200 MG, EVERY DAY), INTRAVENOUS
     Route: 042
     Dates: start: 20051224, end: 20060109
  6. FUROSEMIDE [Suspect]
     Indication: ILL-DEFINED DISORDER
     Dosage: INTRAVENOUS
     Route: 042
     Dates: start: 20051224

REACTIONS (4)
  - AGRANULOCYTOSIS [None]
  - BILIARY DILATATION [None]
  - HEPATITIS CHOLESTATIC [None]
  - RENAL FAILURE ACUTE [None]
